FAERS Safety Report 8857173 (Version 2)
Quarter: 2013Q2

REPORT INFORMATION
  Report Type: Report from Study
  Country: JP (occurrence: JP)
  Receive Date: 20121024
  Receipt Date: 20130625
  Transmission Date: 20140414
  Serious: Yes (Hospitalization)
  Sender: FDA-Public Use
  Company Number: JP-MERCK-1210JPN009223

PATIENT
  Age: 74 Year
  Sex: Female
  Weight: 50 kg

DRUGS (6)
  1. PEGINTRON [Suspect]
     Indication: HEPATIC CIRRHOSIS
     Dosage: 50 MICROGRAM, QW
     Route: 058
     Dates: start: 20120620, end: 20120704
  2. REBETOL [Suspect]
     Indication: HEPATIC CIRRHOSIS
     Dosage: 400 MG, QD
     Route: 048
     Dates: start: 20120620, end: 20120708
  3. LOXONIN [Concomitant]
     Indication: HEADACHE
     Dosage: 60 MG, QD
     Route: 048
     Dates: start: 20120627, end: 20120627
  4. MIYA BM [Concomitant]
     Indication: CONSTIPATION
     Dosage: 6 DF, TID
     Route: 048
     Dates: start: 20120628, end: 20120721
  5. PURSENNID (SENNOSIDES) [Concomitant]
     Indication: CONSTIPATION
     Dosage: 12 MG, ONCE
     Route: 048
     Dates: start: 20120709, end: 20120709
  6. MONILAC [Concomitant]
     Indication: CONSTIPATION
     Dosage: 30 MG, TID
     Route: 048
     Dates: start: 20120628, end: 20120721

REACTIONS (6)
  - Decreased appetite [Recovered/Resolved]
  - Anaemia [Recovering/Resolving]
  - Headache [Recovered/Resolved]
  - Constipation [Recovered/Resolved]
  - Neutrophil count decreased [Recovering/Resolving]
  - Hypothyroidism [Not Recovered/Not Resolved]
